FAERS Safety Report 9344386 (Version 1)
Quarter: 2013Q2

REPORT INFORMATION
  Report Type: Spontaneous
  Country: DE (occurrence: DE)
  Receive Date: 20130612
  Receipt Date: 20130612
  Transmission Date: 20140414
  Serious: Yes (Other)
  Sender: FDA-Public Use
  Company Number: DE-JNJFOC-20130602579

PATIENT
  Age: 60 Year
  Sex: Female

DRUGS (2)
  1. CLADRIBINE [Suspect]
     Indication: NON-HODGKIN^S LYMPHOMA
     Dosage: OVER 3 DAYS
     Route: 042
     Dates: start: 199805, end: 199811
  2. MITOXANTRONE [Suspect]
     Indication: NON-HODGKIN^S LYMPHOMA
     Dosage: OVER 2 DAYS
     Route: 065
     Dates: start: 199805, end: 199811

REACTIONS (2)
  - Progressive multifocal leukoencephalopathy [Unknown]
  - Off label use [Unknown]
